FAERS Safety Report 23808194 (Version 1)
Quarter: 2024Q2

REPORT INFORMATION
  Report Type: Spontaneous
  Country: US (occurrence: US)
  Receive Date: 20240502
  Receipt Date: 20240502
  Transmission Date: 20240716
  Serious: Yes (Other)
  Sender: FDA-Public Use
  Company Number: US-AUROBINDO-AUR-APL-2024-020281

PATIENT
  Age: 47 Year
  Sex: Female

DRUGS (2)
  1. SODIUM NITROPRUSSIDE [Suspect]
     Active Substance: SODIUM NITROPRUSSIDE
     Indication: Hypertensive crisis
     Dosage: UNK
     Route: 065
  2. CLEVIDIPINE [Suspect]
     Active Substance: CLEVIDIPINE
     Indication: Hypertensive crisis
     Dosage: UNK
     Route: 065

REACTIONS (1)
  - Treatment failure [Unknown]
